FAERS Safety Report 4886338-2 (Version None)
Quarter: 2006Q1

REPORT INFORMATION
  Report Type: 
  Country: None (occurrence: None)
  Receive Date: 20060118
  Receipt Date: 20060106
  Transmission Date: 20060701
  Serious: Yes (Other)
  Sender: FDA-Public Use
  Company Number: 2006005561

PATIENT
  Age: 68 Year
  Sex: Female
  Weight: 99.7913 kg

DRUGS (10)
  1. DIFLUCAN [Suspect]
     Indication: FUNGAL INFECTION
     Dosage: ONC WEEKLY; ORAL
     Route: 048
     Dates: start: 20050101, end: 20050101
  2. GLUCOPHAGE [Suspect]
     Indication: ILL-DEFINED DISORDER
  3. INSULIN [Concomitant]
  4. AVANDIA [Concomitant]
  5. MONOPRIL [Concomitant]
  6. ATENOLOL [Concomitant]
  7. LORAZEPAM [Concomitant]
  8. CLONAZEPAM [Concomitant]
  9. DOXEPIN [Concomitant]
  10. ASPIRIN [Concomitant]

REACTIONS (5)
  - ATRIAL FIBRILLATION [None]
  - BLADDER DISORDER [None]
  - HAEMATURIA [None]
  - HYPERGLYCAEMIA [None]
  - TACHYCARDIA [None]
